FAERS Safety Report 4884515-8 (Version None)
Quarter: 2006Q1

REPORT INFORMATION
  Report Type: 
  Country: None (occurrence: None)
  Receive Date: 20060119
  Receipt Date: 20060113
  Transmission Date: 20060701
  Serious: Yes (Other)
  Sender: FDA-Public Use
  Company Number: TN-AVENTIS-200610449GDDC

PATIENT
  Sex: Female

DRUGS (1)
  1. ARAVA [Suspect]
     Indication: POLYARTHRITIS
     Dosage: DOSE: UNK
     Route: 048

REACTIONS (1)
  - CONVULSION [None]
